FAERS Safety Report 23469921 (Version 2)
Quarter: 2024Q1

REPORT INFORMATION
  Report Type: Spontaneous
  Country: US (occurrence: US)
  Receive Date: 20240202
  Receipt Date: 20240305
  Transmission Date: 20240409
  Serious: Yes (Other)
  Sender: FDA-Public Use
  Company Number: US-UCBSA-2024004944

PATIENT
  Sex: Female
  Weight: 108.84 kg

DRUGS (1)
  1. CIMZIA [Suspect]
     Active Substance: CERTOLIZUMAB PEGOL
     Indication: Rheumatoid arthritis
     Dosage: 400 MILLIGRAM, EV 4 WEEKS AS DIRECTED
     Route: 058
     Dates: start: 202205, end: 202401

REACTIONS (4)
  - Surgery [Unknown]
  - Illness [Unknown]
  - COVID-19 [Unknown]
  - Intentional dose omission [Unknown]
